FAERS Safety Report 8202930-1 (Version None)
Quarter: 2012Q1

REPORT INFORMATION
  Report Type: 
  Country: None (occurrence: None)
  Receive Date: 20120312
  Receipt Date: 20120306
  Transmission Date: 20120608
  Serious: Yes (Life-Threatening, Hospitalization, Other)
  Sender: FDA-Public Use
  Company Number: GXKR2012DE001066

PATIENT

DRUGS (5)
  1. AMOXICILLIN [Suspect]
     Indication: PNEUMONIA
     Dosage: 3X1 TABLET AT 1000 MG DAILY PER OS
     Route: 048
     Dates: start: 20111005, end: 20111011
  2. NOVALGIN                                /SCH/ [Suspect]
     Dosage: 2G I.V. ON 22 SEP AND 1G I.V. ON 23 SEP 2011
     Route: 042
     Dates: start: 20110922, end: 20110923
  3. NALOXONE [Suspect]
     Dosage: 1-2 PROLONGED-RELEASE TABLETS DAILY PER OS
     Route: 048
     Dates: start: 20110922, end: 20111030
  4. LOSARTAN POTASSIUM AND HYDROCHLOROTHIAZIDE [Suspect]
     Dosage: 1X1 TABLET DAILY PER OS, BREAK: 21-27 SEP AND 01 OCT 2011
     Route: 048
     Dates: start: 19930101, end: 20111005
  5. NOVALGIN                                /SCH/ [Suspect]
     Dosage: 40-80 DROPS DAILY PER OS
     Route: 048
     Dates: start: 20110922, end: 20111002

REACTIONS (1)
  - RENAL FAILURE ACUTE [None]
